FAERS Safety Report 8455577-6 (Version None)
Quarter: 2012Q2

REPORT INFORMATION
  Report Type: 
  Country: None (occurrence: None)
  Receive Date: 20120621
  Receipt Date: 20120608
  Transmission Date: 20120825
  Serious: No
  Sender: FDA-Public Use
  Company Number: US-B.I. PHARMACEUTICALS,INC./RIDGEFIELD-2011-BP-22812BP

PATIENT
  Sex: Female

DRUGS (13)
  1. SPIRIVA [Suspect]
     Indication: CHRONIC OBSTRUCTIVE PULMONARY DISEASE
     Dosage: 18 MCG
     Route: 055
     Dates: start: 20110801
  2. ALBUTEROL [Concomitant]
     Indication: CHRONIC OBSTRUCTIVE PULMONARY DISEASE
     Route: 055
     Dates: start: 20090101
  3. LEVOTHYROXINE [Concomitant]
     Indication: HYPOTHYROIDISM
  4. SPIRIVA [Suspect]
     Dosage: 18 MCG
     Route: 055
     Dates: start: 20120501
  5. UNNAMED THYROID MEDICATION [Concomitant]
     Indication: HYPOTHYROIDISM
     Route: 048
     Dates: start: 20090101
  6. MUCINEX [Concomitant]
     Indication: EMPHYSEMA
     Route: 048
  7. UNNAMED STATIN MEDICATION [Concomitant]
     Indication: BLOOD CHOLESTEROL INCREASED
     Route: 048
  8. SPIRIVA [Suspect]
     Indication: EMPHYSEMA
     Dosage: 18 MCG
     Route: 048
     Dates: start: 20100101
  9. XANAX [Concomitant]
     Indication: ANXIETY
  10. LIPITOR [Concomitant]
     Indication: BLOOD CHOLESTEROL INCREASED
     Route: 048
  11. SIMVASTATIN [Concomitant]
     Indication: BLOOD CHOLESTEROL INCREASED
  12. CYMBALTA [Concomitant]
     Route: 048
     Dates: start: 20110801, end: 20110901
  13. SYMBICORT [Concomitant]
     Indication: CHRONIC OBSTRUCTIVE PULMONARY DISEASE
     Route: 055

REACTIONS (8)
  - THROAT IRRITATION [None]
  - DYSPHONIA [None]
  - INSOMNIA [None]
  - INCREASED VISCOSITY OF BRONCHIAL SECRETION [None]
  - INCREASED BRONCHIAL SECRETION [None]
  - PRODUCTIVE COUGH [None]
  - INCREASED UPPER AIRWAY SECRETION [None]
  - COUGH [None]
